FAERS Safety Report 10296441 (Version 1)
Quarter: 2014Q3

REPORT INFORMATION
  Report Type: Spontaneous
  Country: US (occurrence: US)
  Receive Date: 20140710
  Receipt Date: 20140710
  Transmission Date: 20150326
  Serious: No
  Sender: FDA-Public Use
  Company Number: US-PURDUE-USA-2014-0115015

PATIENT
  Sex: Female

DRUGS (1)
  1. BUTRANS [Suspect]
     Active Substance: BUPRENORPHINE
     Indication: PAIN
     Dosage: 15 MCG/HR, WEEKLY
     Route: 062

REACTIONS (11)
  - Pain [Unknown]
  - Drug ineffective [Unknown]
  - Drug withdrawal syndrome [Unknown]
  - Application site pain [Unknown]
  - Application site erythema [Unknown]
  - Device leakage [Unknown]
  - Feeling hot [Unknown]
  - Wrong technique in drug usage process [Unknown]
  - Application site pruritus [Unknown]
  - Feeling jittery [Unknown]
  - Product adhesion issue [Unknown]
